FAERS Safety Report 13886021 (Version 1)
Quarter: 2017Q3

REPORT INFORMATION
  Report Type: Spontaneous
  Country: DE (occurrence: DE)
  Receive Date: 20170821
  Receipt Date: 20170821
  Transmission Date: 20171127
  Serious: Yes (Other)
  Sender: FDA-Public Use
  Company Number: DE-ROCHE-1979950

PATIENT
  Age: 54 Year
  Sex: Female

DRUGS (3)
  1. MABTHERA [Suspect]
     Active Substance: RITUXIMAB
     Indication: NON-HODGKIN^S LYMPHOMA
     Dosage: MONOTHERAPY
     Route: 058
  2. MABTHERA [Suspect]
     Active Substance: RITUXIMAB
     Indication: NON-HODGKIN^S LYMPHOMA
     Dosage: 8 CYCLE
     Route: 065
     Dates: start: 201605
  3. BENDAMUSTINE [Suspect]
     Active Substance: BENDAMUSTINE
     Indication: NON-HODGKIN^S LYMPHOMA
     Dosage: 8 CYCLES, 1 DF
     Route: 058
     Dates: start: 201605

REACTIONS (2)
  - Renal cell carcinoma [Unknown]
  - Non-Hodgkin^s lymphoma recurrent [Unknown]

NARRATIVE: CASE EVENT DATE: 201708
